FAERS Safety Report 24086110 (Version 1)
Quarter: 2024Q3

REPORT INFORMATION
  Report Type: Spontaneous
  Country: HR (occurrence: HR)
  Receive Date: 20240712
  Receipt Date: 20240712
  Transmission Date: 20241017
  Serious: Yes (Other)
  Sender: MYLAN
  Company Number: None

PATIENT
  Age: 83 Year
  Sex: Female
  Weight: 55 kg

DRUGS (2)
  1. ZOLOFT [Suspect]
     Active Substance: SERTRALINE HYDROCHLORIDE
     Indication: Depression
     Dosage: 25 MILLIGRAM, QD
     Route: 048
     Dates: start: 20240616, end: 20240628
  2. ZOLOFT [Suspect]
     Active Substance: SERTRALINE HYDROCHLORIDE
     Indication: Anxiety

REACTIONS (9)
  - Blepharospasm [Recovering/Resolving]
  - Muscular weakness [Recovering/Resolving]
  - Heart rate increased [Recovering/Resolving]
  - Muscle spasms [Recovering/Resolving]
  - Dyskinesia [Recovering/Resolving]
  - Tremor [Recovering/Resolving]
  - Dyspepsia [Recovered/Resolved]
  - Nausea [Recovering/Resolving]
  - Arthralgia [Recovering/Resolving]

NARRATIVE: CASE EVENT DATE: 20240621
